FAERS Safety Report 8833792 (Version 1)
Quarter: 2012Q4

REPORT INFORMATION
  Report Type: Spontaneous
  Country: US (occurrence: None)
  Receive Date: 20121010
  Receipt Date: 20121010
  Transmission Date: 20130627
  Serious: Yes (Other)
  Sender: FDA-Public Use
  Company Number: None

PATIENT
  Age: 43 None
  Sex: Female

DRUGS (1)
  1. KEPPRA [Suspect]

REACTIONS (3)
  - Convulsion [None]
  - Condition aggravated [None]
  - Product substitution issue [None]
